FAERS Safety Report 5055180-4 (Version None)
Quarter: 2006Q3

REPORT INFORMATION
  Report Type: 
  Country: None (occurrence: None)
  Receive Date: 20060714
  Receipt Date: 20060705
  Transmission Date: 20061208
  Serious: Yes (Other)
  Sender: FDA-Public Use
  Company Number: GBWYE755620JUN06

PATIENT
  Age: 47 Year
  Sex: Female

DRUGS (3)
  1. EFFEXOR XR [Suspect]
     Indication: DEPRESSION
     Dosage: 150MG EVERY MORNING, ORAL
     Route: 048
     Dates: start: 20031014, end: 20060625
  2. PROMAZINE HCL [Concomitant]
  3. FLUPENTIXOL                    (FLUPENTIXOL) [Concomitant]

REACTIONS (2)
  - ALOPECIA [None]
  - HYPOTRICHOSIS [None]
